FAERS Safety Report 25307272 (Version 3)
Quarter: 2025Q2

REPORT INFORMATION
  Report Type: Spontaneous
  Country: FR (occurrence: FR)
  Receive Date: 20250513
  Receipt Date: 20250527
  Transmission Date: 20250717
  Serious: Yes (Hospitalization)
  Sender: ROCHE
  Company Number: FR-002147023-NVSC2023FR216318

PATIENT

DRUGS (9)
  1. MYCOPHENOLATE MOFETIL [Suspect]
     Active Substance: MYCOPHENOLATE MOFETIL
     Indication: Prophylaxis against graft versus host disease
     Route: 048
  2. MYCOPHENOLATE MOFETIL [Suspect]
     Active Substance: MYCOPHENOLATE MOFETIL
     Route: 042
     Dates: start: 20190505, end: 20190529
  3. MYCOPHENOLATE MOFETIL [Suspect]
     Active Substance: MYCOPHENOLATE MOFETIL
     Route: 048
     Dates: start: 20190505, end: 20190505
  4. MYCOPHENOLATE MOFETIL [Suspect]
     Active Substance: MYCOPHENOLATE MOFETIL
     Route: 042
     Dates: start: 20190506, end: 20190604
  5. MYCOPHENOLATE MOFETIL [Suspect]
     Active Substance: MYCOPHENOLATE MOFETIL
     Route: 042
     Dates: start: 20190506, end: 20190604
  6. CYCLOSPORINE [Suspect]
     Active Substance: CYCLOSPORINE
     Indication: Prophylaxis against graft versus host disease
     Route: 048
     Dates: start: 20190505, end: 20190510
  7. CYCLOSPORINE [Suspect]
     Active Substance: CYCLOSPORINE
     Route: 048
     Dates: start: 20190605, end: 20190702
  8. CYCLOSPORINE [Suspect]
     Active Substance: CYCLOSPORINE
     Route: 048
     Dates: start: 20190505, end: 20190505
  9. CYCLOSPORINE [Suspect]
     Active Substance: CYCLOSPORINE
     Route: 048

REACTIONS (7)
  - Vomiting [Unknown]
  - Diarrhoea [Unknown]
  - Off label use [Unknown]
  - Cholelithiasis [Unknown]
  - Guillain-Barre syndrome [Unknown]
  - Meningitis [Unknown]
  - Gastroenteritis viral [Unknown]

NARRATIVE: CASE EVENT DATE: 20200119
